FAERS Safety Report 5954738-5 (Version None)
Quarter: 2008Q4

REPORT INFORMATION
  Report Type: 
  Country: None (occurrence: None)
  Receive Date: 20081112
  Receipt Date: 20081105
  Transmission Date: 20090506
  Serious: Yes (Death)
  Sender: FDA-Public Use
  Company Number: 2008EU002423

PATIENT
  Sex: 0

DRUGS (3)
  1. TACROLIMUS [Suspect]
     Dosage: UNK D
  2. MYCOPHENOLATE MOFETIL [Suspect]
     Dosage: /D
  3. CORTICOSTEROID NOS(CORTICOSTEROID NOS) [Suspect]
     Dosage: /D

REACTIONS (1)
  - OBLITERATIVE BRONCHIOLITIS [None]
